FAERS Safety Report 10163278 (Version 1)
Quarter: 2014Q2

REPORT INFORMATION
  Report Type: Spontaneous
  Country: US (occurrence: US)
  Receive Date: 20140509
  Receipt Date: 20140509
  Transmission Date: 20141212
  Serious: No
  Sender: FDA-Public Use
  Company Number: US-PFIZER INC-2014124003

PATIENT
  Age: 56 Year
  Sex: Male

DRUGS (3)
  1. EFFEXOR XR [Suspect]
     Dosage: 75 MG, DAILY
     Route: 048
  2. ATIVAN [Suspect]
     Dosage: UNK
  3. ABILIFY [Suspect]
     Dosage: UNK

REACTIONS (2)
  - Drug prescribing error [Unknown]
  - Drug hypersensitivity [Unknown]
